FAERS Safety Report 8767509 (Version 2)
Quarter: 2012Q4

REPORT INFORMATION
  Report Type: 
  Country: US (occurrence: US)
  Receive Date: 20120904
  Receipt Date: 20121130
  Transmission Date: 20130627
  Serious: No
  Sender: FDA-Public Use
  Company Number: US-B.I. PHARMACEUTICALS,INC./RIDGEFIELD-2012-BP-21040BP

PATIENT
  Sex: Male

DRUGS (6)
  1. VIRAMUNE [Suspect]
     Indication: HIV INFECTION
     Dosage: 400 mg
     Route: 048
     Dates: start: 20120409
  2. VIRAMUNE [Suspect]
     Indication: HIV INFECTION
     Dosage: 400 mg
     Route: 048
     Dates: start: 200401, end: 20120409
  3. STATIN [Concomitant]
     Dates: start: 2002
  4. TAGAMET [Concomitant]
     Dates: start: 2002
  5. LISINOPRIL [Concomitant]
     Dates: start: 2002
  6. EPZICOM [Concomitant]
     Dates: start: 2002

REACTIONS (2)
  - Blood count abnormal [Not Recovered/Not Resolved]
  - Medication residue [Unknown]
